FAERS Safety Report 8322731-3 (Version None)
Quarter: 2012Q2

REPORT INFORMATION
  Report Type: 
  Country: None (occurrence: None)
  Receive Date: 20120430
  Receipt Date: 20120427
  Transmission Date: 20120825
  Serious: Yes (Life-Threatening, Hospitalization)
  Sender: FDA-Public Use
  Company Number: IT-BRISTOL-MYERS SQUIBB COMPANY-16554503

PATIENT
  Age: 77 Year
  Sex: Female

DRUGS (4)
  1. METFORMIN HCL [Suspect]
     Indication: TYPE 2 DIABETES MELLITUS
     Route: 048
     Dates: start: 20120310, end: 20120406
  2. CITALOPRAM [Concomitant]
     Route: 048
  3. COUMADIN [Suspect]
     Indication: ATRIAL FIBRILLATION
     Dates: start: 20120310, end: 20120406
  4. CORDARONE [Concomitant]
     Dosage: CORDARONE TABLETS 200MG
     Route: 048

REACTIONS (4)
  - LACTIC ACIDOSIS [None]
  - PERICARDITIS [None]
  - HYPOCOAGULABLE STATE [None]
  - RENAL FAILURE ACUTE [None]
